FAERS Safety Report 9410777 (Version 1)
Quarter: 2013Q3

REPORT INFORMATION
  Report Type: Report from Study
  Country: US (occurrence: US)
  Receive Date: 20130719
  Receipt Date: 20130719
  Transmission Date: 20140515
  Serious: Yes (Other)
  Sender: FDA-Public Use
  Company Number: US-US-EMD SERONO, INC.-7224360

PATIENT
  Sex: Male

DRUGS (3)
  1. REBIF [Suspect]
     Indication: MULTIPLE SCLEROSIS
     Route: 058
     Dates: start: 20120514
  2. GABAPENTIN [Concomitant]
     Indication: MUSCLE SPASTICITY
  3. INSULIN                            /00646001/ [Concomitant]
     Indication: DIABETES MELLITUS

REACTIONS (4)
  - Joint swelling [Recovered/Resolved with Sequelae]
  - Arthropathy [Not Recovered/Not Resolved]
  - Multiple sclerosis [Not Recovered/Not Resolved]
  - Inappropriate schedule of drug administration [Unknown]
